FAERS Safety Report 5001865-5 (Version None)
Quarter: 2006Q2

REPORT INFORMATION
  Report Type: 
  Country: None (occurrence: None)
  Receive Date: 20060515
  Receipt Date: 20060508
  Transmission Date: 20061013
  Serious: Yes (Other)
  Sender: FDA-Public Use
  Company Number: ES-GLAXOSMITHKLINE-B0423700A

PATIENT
  Age: 16 Year
  Sex: Male

DRUGS (2)
  1. FLIXOTIDE [Suspect]
     Indication: ASTHMA
     Route: 055
  2. UNKNOWN TREATMENT [Concomitant]

REACTIONS (4)
  - BONE DENSITY DECREASED [None]
  - CATARACT [None]
  - FUNDOSCOPY [None]
  - TOOTH DISORDER [None]
